FAERS Safety Report 12404634 (Version 1)
Quarter: 2016Q2

REPORT INFORMATION
  Report Type: Spontaneous
  Country: US (occurrence: US)
  Receive Date: 20160525
  Receipt Date: 20160525
  Transmission Date: 20160815
  Serious: Yes (Death, Other)
  Sender: FDA-Public Use
  Company Number: US-MYLANLABS-2016M1021428

PATIENT

DRUGS (2)
  1. LOPERAMIDE [Suspect]
     Active Substance: LOPERAMIDE
     Indication: DRUG ABUSE
     Dosage: UNK
  2. LOPERAMIDE [Suspect]
     Active Substance: LOPERAMIDE
     Indication: OFF LABEL USE

REACTIONS (5)
  - Overdose [Fatal]
  - Pulmonary oedema [Fatal]
  - Cardiac arrest [Fatal]
  - Cardiomegaly [Fatal]
  - Drug abuse [Fatal]
